FAERS Safety Report 8120909-5 (Version None)
Quarter: 2012Q1

REPORT INFORMATION
  Report Type: 
  Country: None (occurrence: None)
  Receive Date: 20120208
  Receipt Date: 20120130
  Transmission Date: 20120608
  Serious: Yes (Other)
  Sender: FDA-Public Use
  Company Number: US-ELI_LILLY_AND_COMPANY-US201201009536

PATIENT
  Sex: Female

DRUGS (1)
  1. CYMBALTA [Suspect]
     Indication: FIBROMYALGIA
     Dosage: 60 MG, QD
     Dates: start: 20090101

REACTIONS (7)
  - BLISTER [None]
  - PRURITUS [None]
  - HYPERSENSITIVITY [None]
  - SCAR [None]
  - RASH PRURITIC [None]
  - SKIN ULCER [None]
  - SCAB [None]
